FAERS Safety Report 7020205-3 (Version None)
Quarter: 2010Q3

REPORT INFORMATION
  Report Type: 
  Country: None (occurrence: None)
  Receive Date: 20100929
  Receipt Date: 20100916
  Transmission Date: 20110219
  Serious: Yes (Hospitalization, Disabling, Other)
  Sender: FDA-Public Use
  Company Number: PHEH2004US03586

PATIENT
  Sex: Female

DRUGS (55)
  1. AREDIA [Suspect]
     Indication: MULTIPLE MYELOMA
     Dosage: 90 MG/QMONTH
     Route: 042
     Dates: start: 19980119, end: 20010524
  2. AREDIA [Suspect]
     Indication: HYPERCALCAEMIA
  3. ZOMETA [Suspect]
     Indication: HYPERCALCAEMIA OF MALIGNANCY
     Dosage: 4MG
  4. ZOMETA [Suspect]
     Indication: MULTIPLE MYELOMA
  5. PAXIL [Concomitant]
  6. K-DUR [Concomitant]
  7. MS CONTIN [Concomitant]
  8. VINCRISTINE [Concomitant]
  9. ADRIAMYCIN PFS [Concomitant]
  10. CYTOXAN [Concomitant]
  11. PREDNISONE [Concomitant]
  12. DECADRON [Concomitant]
     Dosage: ONE DOSE
  13. VALIUM [Concomitant]
     Dosage: 2 MG, UNK
  14. COUMADIN [Concomitant]
  15. TYLENOL W/ CODEINE NO. 3 [Concomitant]
  16. AXID [Concomitant]
     Dosage: 150 MG, UNK
  17. MULTI-VITAMINS [Concomitant]
  18. DIFLUCAN [Concomitant]
     Dosage: 200 MG, UNK
  19. KYTRIL [Concomitant]
     Dosage: 1 MG, UNK
  20. MELPHALAN HYDROCHLORIDE [Concomitant]
  21. LASIX [Concomitant]
     Dosage: 20 MG, UNK
  22. ATIVAN [Concomitant]
     Dosage: 0.25 MG, UNK
  23. OXYCONTIN [Concomitant]
     Dosage: 10 MG, UNK
  24. QUININE SULFATE [Concomitant]
     Dosage: 500 MG, BID
  25. PIRAMIDON [Concomitant]
     Dosage: 250 MG, UNK
  26. HYDROCORTISONE [Concomitant]
  27. PLAVIX [Concomitant]
  28. OSCAL [Concomitant]
  29. NITROGLYCERIN [Concomitant]
  30. NITROGLYCERIN [Concomitant]
  31. FLORINEF [Concomitant]
  32. DOXYCYCLINE [Concomitant]
  33. SIMVASTATIN [Concomitant]
  34. CALCIUM WITH VITAMIN D [Concomitant]
  35. GENTEAL LUBRICANT [Concomitant]
  36. RESTASIS [Concomitant]
  37. PIRAMIDONE [Concomitant]
     Dosage: 250MG, QD
  38. CORTEF [Concomitant]
     Dosage: CORTEF 5MG 2 TABLETS IN AM AND 1 TABLET IN PM
  39. POTASSIUM CHLORIDE [Concomitant]
     Dosage: 20 MEQ, QD
  40. CIPRO [Concomitant]
     Dosage: 250MG,QD
  41. FLAXSEED OIL [Concomitant]
     Dosage: 1000 MG
  42. GENTEAL [Concomitant]
     Dosage: 2 GTTS TID
  43. FLAGYL [Concomitant]
     Dosage: 250MG, BID
  44. PRIMODIAN [Concomitant]
  45. NEPHRO-VITE [Concomitant]
  46. DARVOCET-N 100 [Concomitant]
  47. AUGMENTIN '125' [Concomitant]
  48. ROXICET [Concomitant]
  49. MAG-OX [Concomitant]
  50. PRIMIDONE [Concomitant]
  51. KAYEXALATE [Concomitant]
  52. SEVELAMER [Concomitant]
     Dosage: 1600 MG, TID
  53. PROAMATINE [Concomitant]
     Dosage: 10 MG, BID
  54. DIGOXIN [Concomitant]
     Dosage: 0.063 MG, QOD
  55. CARDIZEM [Concomitant]
     Dosage: 60 MG, RUN IN PHASE

REACTIONS (99)
  - ADDISON'S DISEASE [None]
  - ANAEMIA OF CHRONIC DISEASE [None]
  - ANGIOPLASTY [None]
  - ARTERIAL OCCLUSIVE DISEASE [None]
  - ATRIAL FIBRILLATION [None]
  - BACK DISORDER [None]
  - BETA 2 MICROGLOBULIN INCREASED [None]
  - BIOPSY BONE ABNORMAL [None]
  - BONE DEBRIDEMENT [None]
  - BONE DISORDER [None]
  - BONE MARROW TRANSPLANT [None]
  - BRONCHITIS [None]
  - BURSITIS [None]
  - CANDIDIASIS [None]
  - CARDIAC ARREST [None]
  - CARDIAC DISORDER [None]
  - CARDIAC FAILURE CONGESTIVE [None]
  - CARDIAC OPERATION [None]
  - CARDIOMEGALY [None]
  - CARDIOVASCULAR DISORDER [None]
  - CATHETERISATION CARDIAC [None]
  - CELLULITIS [None]
  - CHOLECYSTECTOMY [None]
  - COAGULOPATHY [None]
  - CORONARY ARTERY BYPASS [None]
  - CORONARY ARTERY DISEASE [None]
  - DEAFNESS [None]
  - DECREASED APPETITE [None]
  - DENTAL ALVEOLAR ANOMALY [None]
  - DENTAL EXAMINATION ABNORMAL [None]
  - DIALYSIS [None]
  - DILATATION VENTRICULAR [None]
  - DYSGEUSIA [None]
  - DYSPHAGIA [None]
  - EDENTULOUS [None]
  - EJECTION FRACTION DECREASED [None]
  - ENDOTRACHEAL INTUBATION [None]
  - ENTEROCOCCUS TEST POSITIVE [None]
  - EXTREMITY NECROSIS [None]
  - FACIAL PAIN [None]
  - FANCONI SYNDROME [None]
  - GASTROINTESTINAL TUBE INSERTION [None]
  - HIP FRACTURE [None]
  - HYPERKALAEMIA [None]
  - HYPERPARATHYROIDISM [None]
  - HYPOKALAEMIA [None]
  - HYPOTENSION [None]
  - IMPAIRED HEALING [None]
  - IMPETIGO [None]
  - INFECTION [None]
  - JAW FRACTURE [None]
  - JAW OPERATION [None]
  - JOINT CREPITATION [None]
  - JOINT DISLOCATION [None]
  - KLEBSIELLA INFECTION [None]
  - KYPHOSCOLIOSIS [None]
  - LIMB OPERATION [None]
  - MALNUTRITION [None]
  - MECHANICAL VENTILATION [None]
  - MITRAL VALVE REPLACEMENT [None]
  - MYELOMA RECURRENCE [None]
  - MYOCLONUS [None]
  - NEUROPATHY PERIPHERAL [None]
  - OEDEMA DUE TO CARDIAC DISEASE [None]
  - OSTEOLYSIS [None]
  - OSTEOMYELITIS [None]
  - OSTEONECROSIS OF JAW [None]
  - OSTEOPENIA [None]
  - OSTEOSCLEROSIS [None]
  - PAIN [None]
  - PAIN IN JAW [None]
  - PERIPHERAL ARTERIAL OCCLUSIVE DISEASE [None]
  - PERIPHERAL VASCULAR DISORDER [None]
  - PLEURAL EFFUSION [None]
  - PLEURAL FIBROSIS [None]
  - PSEUDOMONAS INFECTION [None]
  - PULMONARY CONGESTION [None]
  - PULMONARY HYPERTENSION [None]
  - PULMONARY OEDEMA [None]
  - PURULENT DISCHARGE [None]
  - RENAL FAILURE CHRONIC [None]
  - RIB FRACTURE [None]
  - SCOLIOSIS [None]
  - SEPSIS [None]
  - SEPTIC SHOCK [None]
  - SOFT TISSUE DISORDER [None]
  - SPINAL COMPRESSION FRACTURE [None]
  - STEM CELL TRANSPLANT [None]
  - STREPTOCOCCAL SEPSIS [None]
  - SWELLING FACE [None]
  - THERMAL BURN [None]
  - THROMBECTOMY [None]
  - THROMBOCYTOPENIA [None]
  - THROMBOSIS IN DEVICE [None]
  - TONGUE ULCERATION [None]
  - TRACHEOSTOMY [None]
  - TRICUSPID VALVE INCOMPETENCE [None]
  - WEIGHT DECREASED [None]
  - X-RAY ABNORMAL [None]
